FAERS Safety Report 26032524 (Version 1)
Quarter: 2025Q4

REPORT INFORMATION
  Report Type: Spontaneous
  Country: EU (occurrence: EU)
  Receive Date: 20251112
  Receipt Date: 20251112
  Transmission Date: 20260118
  Serious: Yes (Hospitalization, Other)
  Sender: BAXTER
  Company Number: None

PATIENT
  Age: 70 Year
  Sex: Male
  Weight: 62 kg

DRUGS (7)
  1. IFOSFAMIDE [Suspect]
     Active Substance: IFOSFAMIDE
     Indication: Liposarcoma
     Dosage: 3000 MG/M2, 1 CYCLICAL, (3000 MG/M? FOR 3 DAYS, BUT SUSPENDED ON THE  3RD DAY DUE TO SUSPECTED ADR)
     Route: 042
     Dates: start: 20251008, end: 20251009
  2. MESNA [Suspect]
     Active Substance: MESNA
     Indication: Liposarcoma
     Dosage: 1 GRAM PER SQUARE METRE, 1 CYCLICAL (GIVEN IN CYCLES)
     Route: 042
     Dates: start: 20251008, end: 20251009
  3. EPIRUBICIN [Concomitant]
     Active Substance: EPIRUBICIN
     Indication: Liposarcoma
     Dosage: 30 MG/M2, 1 CYCLICAL (1.2.3 EVERY 21 DAYS)
     Route: 042
     Dates: start: 20251008, end: 20251010
  4. PANTOPRAZOLE [Concomitant]
     Active Substance: PANTOPRAZOLE
     Dosage: UNK
     Route: 065
  5. METOCLOPRAMIDE [Concomitant]
     Active Substance: METOCLOPRAMIDE
     Dosage: UNK
     Route: 065
  6. NALDEMEDINE TOSYLATE [Concomitant]
     Active Substance: NALDEMEDINE TOSYLATE
     Dosage: UNK
     Route: 065
  7. HEPARIN CALCIUM [Concomitant]
     Active Substance: HEPARIN CALCIUM
     Dosage: UNK
     Route: 065

REACTIONS (6)
  - Encephalopathy [Recovered/Resolved]
  - Disorientation [Recovered/Resolved]
  - Agitation [Recovered/Resolved]
  - Disorientation [Recovered/Resolved]
  - Agitation [Recovered/Resolved]
  - Delusion [Recovered/Resolved]

NARRATIVE: CASE EVENT DATE: 20251008
